FAERS Safety Report 5499082-8 (Version None)
Quarter: 2007Q4

REPORT INFORMATION
  Report Type: 
  Country: None (occurrence: None)
  Receive Date: 20071026
  Receipt Date: 20070529
  Transmission Date: 20080405
  Serious: No
  Sender: FDA-Public Use
  Company Number: A0653212A

PATIENT
  Age: 81 Year
  Sex: Female

DRUGS (13)
  1. ADVAIR DISKUS 100/50 [Suspect]
     Indication: BRONCHITIS
     Dosage: 1PUFF TWICE PER DAY
     Route: 055
  2. FUROSEMIDE [Concomitant]
  3. LORAZEPAM [Concomitant]
  4. VITAMIN [Concomitant]
  5. GLUCOTROL XL [Concomitant]
  6. ALLOPURINOL [Concomitant]
  7. PLAVIX [Concomitant]
  8. PRAVASTATIN [Concomitant]
  9. ACTOS [Concomitant]
  10. ATENOLOL [Concomitant]
  11. SYNTHROID [Concomitant]
  12. COZAAR [Concomitant]
  13. TRAZODONE HCL [Concomitant]

REACTIONS (1)
  - DYSPHONIA [None]
